FAERS Safety Report 4380529-5 (Version None)
Quarter: 2004Q2

REPORT INFORMATION
  Report Type: 
  Country: None (occurrence: None)
  Receive Date: 20040614
  Receipt Date: 20040329
  Transmission Date: 20050107
  Serious: Yes (Death)
  Sender: FDA-Public Use
  Company Number: M04-341-100

PATIENT
  Age: 56 Year
  Sex: Male

DRUGS (1)
  1. VELCADE [Suspect]
     Indication: LYMPHOMA

REACTIONS (1)
  - DISEASE PROGRESSION [None]
